FAERS Safety Report 9780365 (Version 3)
Quarter: 2014Q1

REPORT INFORMATION
  Report Type: Spontaneous
  Country: JP (occurrence: JP)
  Receive Date: 20131224
  Receipt Date: 20140328
  Transmission Date: 20141002
  Serious: Yes (Other)
  Sender: FDA-Public Use
  Company Number: JP-AMGEN-JPNSP2013089542

PATIENT
  Age: 60 Year
  Sex: Female

DRUGS (1)
  1. RANMARK [Suspect]
     Indication: METASTASES TO BONE
     Dosage: 120 MG, ONCE EVERY 1 MO
     Route: 058
     Dates: start: 201208

REACTIONS (1)
  - Osteonecrosis of jaw [Not Recovered/Not Resolved]
